FAERS Safety Report 17129183 (Version 1)
Quarter: 2019Q4

REPORT INFORMATION
  Report Type: Spontaneous
  Country: US (occurrence: US)
  Receive Date: 20191208
  Receipt Date: 20191208
  Transmission Date: 20200122
  Serious: No
  Sender: FDA-Public Use
  Company Number: None

PATIENT
  Age: 20 Year
  Sex: Female
  Weight: 63 kg

DRUGS (4)
  1. OMEPRAZOLE. [Concomitant]
     Active Substance: OMEPRAZOLE
  2. LO LOESTRIN FE [Concomitant]
     Active Substance: ETHINYL ESTRADIOL\NORETHINDRONE ACETATE
  3. CONCERTA (72MG) [Concomitant]
  4. METHYLPHENIDATE ER HCL [Suspect]
     Active Substance: METHYLPHENIDATE HYDROCHLORIDE
     Indication: ATTENTION DEFICIT/HYPERACTIVITY DISORDER
     Dosage: ?          QUANTITY:2 TABLET(S);?
     Route: 048
     Dates: start: 20190611, end: 20190808

REACTIONS (9)
  - Impulsive behaviour [None]
  - Product complaint [None]
  - Product substitution issue [None]
  - Partner stress [None]
  - Depression [None]
  - Disturbance in attention [None]
  - Anxiety [None]
  - Therapeutic product effect incomplete [None]
  - Product quality issue [None]

NARRATIVE: CASE EVENT DATE: 20190611
